FAERS Safety Report 8457378-1 (Version None)
Quarter: 2012Q2

REPORT INFORMATION
  Report Type: 
  Country: None (occurrence: None)
  Receive Date: 20120621
  Receipt Date: 20120619
  Transmission Date: 20120825
  Serious: No
  Sender: FDA-Public Use
  Company Number: US-PFIZER INC-2012148717

PATIENT
  Sex: Male

DRUGS (2)
  1. TESTOSTERONE CYPIONATE [Suspect]
     Indication: BLOOD TESTOSTERONE DECREASED
     Dosage: 200 MG EVERY 3 TO 4 WEEKS
     Dates: end: 20120101
  2. DEPO-TESTOSTERONE [Suspect]
     Indication: BLOOD TESTOSTERONE DECREASED
     Dosage: 200 MG, CYCLIC (EVERY 3 TO 4 WEEKS)
     Dates: start: 20120530

REACTIONS (2)
  - DRUG INEFFECTIVE [None]
  - ACNE [None]
